FAERS Safety Report 6757687-8 (Version None)
Quarter: 2010Q2

REPORT INFORMATION
  Report Type: 
  Country: None (occurrence: None)
  Receive Date: 20100604
  Receipt Date: 20100604
  Transmission Date: 20101027
  Serious: No
  Sender: FDA-Public Use
  Company Number: None

PATIENT
  Sex: Male
  Weight: 76.5 kg

DRUGS (4)
  1. PEG-L-ASPARAGINASE  (PEGASPARGASE, ONCOSPAR) [Suspect]
     Dosage: 4850 MG
     Dates: end: 20100513
  2. VINCRISTINE SULFATE [Suspect]
     Dosage: 6 MG
     Dates: end: 20100602
  3. METHOTREXATE [Suspect]
     Dosage: 889 MG
     Dates: end: 20100602
  4. HEPARIN [Concomitant]

REACTIONS (3)
  - ACTIVATED PARTIAL THROMBOPLASTIN TIME PROLONGED [None]
  - BLOOD GLUCOSE INCREASED [None]
  - PRODUCT CONTAMINATION [None]
